FAERS Safety Report 6983108-6 (Version None)
Quarter: 2010Q3

REPORT INFORMATION
  Report Type: 
  Country: None (occurrence: None)
  Receive Date: 20100914
  Receipt Date: 20100608
  Transmission Date: 20110219
  Serious: No
  Sender: FDA-Public Use
  Company Number: US-PFIZER INC-2010073303

PATIENT
  Sex: Male
  Weight: 32.653 kg

DRUGS (7)
  1. LYRICA [Suspect]
     Indication: NEUROPATHY PERIPHERAL
     Dosage: 75 MG, 1X/DAY
     Route: 048
     Dates: start: 20100528, end: 20100606
  2. RAMIPRIL [Concomitant]
     Dosage: 10 MG, 1X/DAY
  3. LIPITOR [Concomitant]
     Indication: BLOOD CHOLESTEROL INCREASED
     Dosage: 10 MG, 1X/DAY
  4. FISH OIL [Concomitant]
     Dosage: UNK
  5. TYLENOL [Concomitant]
     Dosage: 500 MG, 1X/DAY
  6. TAMSULOSIN [Concomitant]
     Indication: PROSTATIC DISORDER
     Dosage: 0.4 MG, 1X/DAY
  7. TRAMADOL [Concomitant]
     Indication: BACK DISORDER
     Dosage: 50 MG, 1X/DAY

REACTIONS (1)
  - PAIN [None]
